FAERS Safety Report 14585271 (Version 1)
Quarter: 2018Q1

REPORT INFORMATION
  Report Type: Report from Study
  Country: US (occurrence: US)
  Receive Date: 20180301
  Receipt Date: 20180301
  Transmission Date: 20180509
  Serious: Yes (Other)
  Sender: FDA-Public Use
  Company Number: US-ROCHE-2079695

PATIENT
  Age: 15 Year
  Sex: Female
  Weight: 38.59 kg

DRUGS (1)
  1. NUTROPIN AQ [Suspect]
     Active Substance: SOMATROPIN
     Indication: BODY HEIGHT BELOW NORMAL
     Route: 058

REACTIONS (5)
  - Injection site bruising [Unknown]
  - Nausea [Unknown]
  - Headache [Unknown]
  - Platelet count decreased [Unknown]
  - Nocturia [Unknown]

NARRATIVE: CASE EVENT DATE: 20140121
